FAERS Safety Report 16961409 (Version 1)
Quarter: 2019Q4

REPORT INFORMATION
  Report Type: Spontaneous
  Country: CA (occurrence: CA)
  Receive Date: 20191025
  Receipt Date: 20191025
  Transmission Date: 20200122
  Serious: Yes (Life-Threatening, Hospitalization, Other)
  Sender: FDA-Public Use
  Company Number: CA-PFIZER INC-2019459339

PATIENT
  Age: 10 Year
  Sex: Male

DRUGS (7)
  1. APO-MIDAZOLAM [Suspect]
     Active Substance: MIDAZOLAM HYDROCHLORIDE
     Indication: DYSTONIA
     Dosage: UNK
     Route: 040
  2. LORAZEPAM. [Suspect]
     Active Substance: LORAZEPAM
     Indication: DYSTONIA
     Dosage: UNK
     Route: 048
  3. CLONIDINE. [Suspect]
     Active Substance: CLONIDINE
     Indication: DYSTONIA
     Dosage: UNK (1 EVERY 4 DAY(S) )
     Route: 048
  4. CHLORPROMAZINE. [Suspect]
     Active Substance: CHLORPROMAZINE
     Indication: HYPERKINESIA
     Dosage: UNK
     Route: 065
  5. KETAMINE [Suspect]
     Active Substance: KETAMINE
     Indication: DYSTONIA
     Dosage: UNK
     Route: 065
  6. DEXMEDETOMIDINE. [Concomitant]
     Active Substance: DEXMEDETOMIDINE
     Indication: DYSTONIA
     Dosage: 1.2 UG/KG, UNK (1 EVERY 1 HOUR(S))
     Route: 041
  7. CHLORAL HYDRATE [Suspect]
     Active Substance: CHLORAL HYDRATE
     Indication: DYSTONIA
     Dosage: UNK
     Route: 048

REACTIONS (7)
  - Dystonia [Recovered/Resolved]
  - Treatment failure [Recovered/Resolved]
  - Drug intolerance [Recovered/Resolved]
  - Off label use [Unknown]
  - Condition aggravated [Recovered/Resolved]
  - Product use issue [Unknown]
  - Product use in unapproved indication [Unknown]
